FAERS Safety Report 17442878 (Version 3)
Quarter: 2022Q1

REPORT INFORMATION
  Report Type: Report from Study
  Country: NL (occurrence: NL)
  Receive Date: 20200221
  Receipt Date: 20220222
  Transmission Date: 20220423
  Serious: Yes (Hospitalization)
  Sender: FDA-Public Use
  Company Number: NL-ABBVIE-16P-114-1801964-00

PATIENT
  Sex: Female
  Weight: 62 kg

DRUGS (21)
  1. CARBIDOPA\LEVODOPA [Suspect]
     Active Substance: CARBIDOPA\LEVODOPA
     Indication: Parkinson^s disease
     Dosage: MD: 9, CD: 1, ED: 0.5
     Route: 050
     Dates: start: 20161121, end: 20170407
  2. CARBIDOPA\LEVODOPA [Suspect]
     Active Substance: CARBIDOPA\LEVODOPA
     Dosage: MD: 9, CD: 1.2ML, ED: 1ML
     Route: 050
     Dates: start: 20170407
  3. CARBIDOPA\LEVODOPA [Suspect]
     Active Substance: CARBIDOPA\LEVODOPA
     Dosage: MD 9.0, CD 1.6, ED 1.0
     Route: 050
  4. CARBIDOPA\LEVODOPA [Suspect]
     Active Substance: CARBIDOPA\LEVODOPA
     Dosage: MD 9.0 CD 1.6 ED 1.5
     Route: 050
  5. CARBIDOPA\LEVODOPA [Suspect]
     Active Substance: CARBIDOPA\LEVODOPA
     Dosage: MD 9 CD 1.9 ED 1.0
     Route: 050
  6. CARBIDOPA\LEVODOPA [Suspect]
     Active Substance: CARBIDOPA\LEVODOPA
     Dosage: CD 1.6 ED 1.0
     Route: 050
  7. CARBIDOPA\LEVODOPA [Suspect]
     Active Substance: CARBIDOPA\LEVODOPA
     Dosage: MD: 9.0, CD: 1.9, ED: 2.0; 16 HOUR ADMINISTRATION
     Route: 050
  8. SINEMET [Suspect]
     Active Substance: CARBIDOPA\LEVODOPA
     Indication: Product used for unknown indication
     Route: 065
  9. PRAMIPEXOLE [Suspect]
     Active Substance: PRAMIPEXOLE
     Indication: Product used for unknown indication
     Route: 065
  10. PRAMIPEXOLE [Suspect]
     Active Substance: PRAMIPEXOLE
     Dosage: DOSE REDUCED
     Route: 065
  11. BENSERAZIDE HYDROCHLORIDE\LEVODOPA [Suspect]
     Active Substance: BENSERAZIDE HYDROCHLORIDE\LEVODOPA
     Indication: Product used for unknown indication
     Dosage: ONCE A DAY WHEN THE PUMP IS CONNECTED
     Route: 065
  12. SINEMET [Concomitant]
     Active Substance: CARBIDOPA\LEVODOPA
     Indication: Parkinson^s disease
  13. SINEMET [Concomitant]
     Active Substance: CARBIDOPA\LEVODOPA
  14. BENSERAZIDE HYDROCHLORIDE\LEVODOPA [Concomitant]
     Active Substance: BENSERAZIDE HYDROCHLORIDE\LEVODOPA
     Indication: Parkinson^s disease
     Dosage: ONCE A DAY WHEN THE PUMP WAS CONNECTED
  15. PRAMIPEXOL RET [Concomitant]
     Indication: Parkinson^s disease
  16. PRAMIPEXOL RET [Concomitant]
  17. SILVER NITRATE [Concomitant]
     Active Substance: SILVER NITRATE
     Indication: Product used for unknown indication
  18. CARBIDOPA\LEVODOPA [Concomitant]
     Active Substance: CARBIDOPA\LEVODOPA
     Indication: Product used for unknown indication
  19. RIVASTIGMINE [Concomitant]
     Active Substance: RIVASTIGMINE
     Indication: Product used for unknown indication
  20. CLOZAPINE [Concomitant]
     Active Substance: CLOZAPINE
     Indication: Product used for unknown indication
  21. CARBIDOPA\LEVODOPA [Concomitant]
     Active Substance: CARBIDOPA\LEVODOPA
     Indication: Product used for unknown indication

REACTIONS (69)
  - Fatigue [Not Recovered/Not Resolved]
  - Freezing phenomenon [Not Recovered/Not Resolved]
  - On and off phenomenon [Not Recovered/Not Resolved]
  - Bradykinesia [Not Recovered/Not Resolved]
  - Muscle rigidity [Not Recovered/Not Resolved]
  - Muscle rigidity [Recovered/Resolved]
  - Influenza like illness [Not Recovered/Not Resolved]
  - Dysstasia [Recovering/Resolving]
  - Mobility decreased [Not Recovered/Not Resolved]
  - Fine motor skill dysfunction [Recovering/Resolving]
  - Device breakage [Unknown]
  - Device issue [Unknown]
  - Inappropriate schedule of product administration [Unknown]
  - Incorrect dose administered [Recovered/Resolved]
  - Faeces hard [Not Recovered/Not Resolved]
  - Fibroma [Recovered/Resolved]
  - Speech disorder [Not Recovered/Not Resolved]
  - Gait disturbance [Recovering/Resolving]
  - Tremor [Not Recovered/Not Resolved]
  - Memory impairment [Not Recovered/Not Resolved]
  - Weight increased [Recovered/Resolved]
  - Tension [Not Recovered/Not Resolved]
  - Malaise [Recovering/Resolving]
  - Fatigue [Recovered/Resolved]
  - Dyskinesia [Recovered/Resolved]
  - Stoma site erythema [Recovered/Resolved]
  - Stoma site pain [Recovered/Resolved]
  - Stoma site discharge [Recovered/Resolved]
  - Stoma site reaction [Recovered/Resolved]
  - Therapeutic product effect delayed [Unknown]
  - Freezing phenomenon [Recovered/Resolved]
  - Middle insomnia [Not Recovered/Not Resolved]
  - Hallucination, visual [Recovered/Resolved]
  - Dyskinesia [Recovering/Resolving]
  - Dizziness [Not Recovered/Not Resolved]
  - Drug ineffective [Not Recovered/Not Resolved]
  - Orthostatic hypotension [Not Recovered/Not Resolved]
  - Therapeutic product effect variable [Recovered/Resolved]
  - Hyperhidrosis [Not Recovered/Not Resolved]
  - Fear [Not Recovered/Not Resolved]
  - Memory impairment [Not Recovered/Not Resolved]
  - Stoma site erythema [Recovered/Resolved]
  - Stoma site discharge [Not Recovered/Not Resolved]
  - Abnormal dreams [Recovered/Resolved]
  - Stoma site reaction [Recovered/Resolved]
  - Fibroma [Not Recovered/Not Resolved]
  - Initial insomnia [Recovered/Resolved]
  - Fluid intake reduced [Not Recovered/Not Resolved]
  - Oedema peripheral [Not Recovered/Not Resolved]
  - Insomnia [Recovered/Resolved]
  - Diplopia [Not Recovered/Not Resolved]
  - Fear [Unknown]
  - Stoma site infection [Not Recovered/Not Resolved]
  - Parkinson^s disease [Not Recovered/Not Resolved]
  - Bradykinesia [Unknown]
  - Weight decreased [Recovered/Resolved]
  - General physical health deterioration [Not Recovered/Not Resolved]
  - Therapeutic product effect incomplete [Not Recovered/Not Resolved]
  - Constipation [Not Recovered/Not Resolved]
  - Abnormal dreams [Recovered/Resolved]
  - General physical health deterioration [Not Recovered/Not Resolved]
  - Musculoskeletal stiffness [Not Recovered/Not Resolved]
  - Impaired self-care [Not Recovered/Not Resolved]
  - Constipation [Recovered/Resolved]
  - Stoma site erythema [Recovering/Resolving]
  - Stoma site discharge [Recovering/Resolving]
  - Muscle rigidity [Unknown]
  - Headache [Unknown]
  - Cognitive disorder [Not Recovered/Not Resolved]

NARRATIVE: CASE EVENT DATE: 20160101
